FAERS Safety Report 17813957 (Version 3)
Quarter: 2020Q2

REPORT INFORMATION
  Report Type: Report from Study
  Country: US (occurrence: US)
  Receive Date: 20200521
  Receipt Date: 20200608
  Transmission Date: 20200714
  Serious: No
  Sender: FDA-Public Use
  Company Number: NVSC2020US140334

PATIENT
  Sex: Female

DRUGS (1)
  1. ENTRESTO [Suspect]
     Active Substance: SACUBITRIL\VALSARTAN
     Indication: CARDIAC FAILURE
     Dosage: 50 MG (24.26) 1/2 TABLET, BID
     Route: 048
     Dates: start: 2018

REACTIONS (10)
  - Visual impairment [Unknown]
  - Memory impairment [Unknown]
  - Diarrhoea [Unknown]
  - Movement disorder [Unknown]
  - Malaise [Unknown]
  - Abdominal pain upper [Unknown]
  - Back pain [Unknown]
  - Hypoacusis [Unknown]
  - Product dose omission [Recovering/Resolving]
  - Wrong technique in product usage process [Unknown]
